FAERS Safety Report 5250007-X (Version None)
Quarter: 2007Q1

REPORT INFORMATION
  Report Type: 
  Country: None (occurrence: None)
  Receive Date: 20070228
  Receipt Date: 20060123
  Transmission Date: 20070707
  Serious: No
  Sender: FDA-Public Use
  Company Number: US-GLAXOSMITHKLINE-A0590491A

PATIENT
  Age: 32 Year
  Sex: Female

DRUGS (2)
  1. LAMICTAL [Suspect]
     Dosage: 25MG PER DAY
     Route: 048
     Dates: start: 20060101, end: 20060115
  2. CYMBALTA [Concomitant]

REACTIONS (4)
  - DIZZINESS [None]
  - MOOD ALTERED [None]
  - NAUSEA [None]
  - TREMOR [None]
